FAERS Safety Report 5298909-2 (Version None)
Quarter: 2007Q2

REPORT INFORMATION
  Report Type: 
  Country: None (occurrence: None)
  Receive Date: 20070417
  Receipt Date: 20070403
  Transmission Date: 20071010
  Serious: Yes (Other)
  Sender: FDA-Public Use
  Company Number: NLWYE328103APR07

PATIENT
  Sex: Male

DRUGS (2)
  1. ENBREL [Suspect]
     Indication: ANKYLOSING SPONDYLITIS
     Route: 058
     Dates: start: 20060407, end: 20060921
  2. ENBREL [Suspect]
     Route: 058
     Dates: start: 20070201, end: 20070319

REACTIONS (2)
  - ALANINE AMINOTRANSFERASE INCREASED [None]
  - ASPARTATE AMINOTRANSFERASE INCREASED [None]
